FAERS Safety Report 7799272-5 (Version None)
Quarter: 2011Q4

REPORT INFORMATION
  Report Type: 
  Country: None (occurrence: None)
  Receive Date: 20111006
  Receipt Date: 20110713
  Transmission Date: 20120403
  Serious: No
  Sender: FDA-Public Use
  Company Number: US-GLAXOSMITHKLINE-A0936658A

PATIENT
  Age: 16 Year
  Sex: Female

DRUGS (2)
  1. ZYRTEC [Concomitant]
  2. DUAC [Suspect]
     Indication: ACNE
     Dosage: 1APP PER DAY
     Route: 061
     Dates: start: 20100101

REACTIONS (2)
  - DRUG INEFFECTIVE [None]
  - ACNE [None]
